FAERS Safety Report 16130954 (Version 2)
Quarter: 2020Q1

REPORT INFORMATION
  Report Type: Report from Study
  Country: US (occurrence: US)
  Receive Date: 20190328
  Receipt Date: 20200305
  Transmission Date: 20200409
  Serious: Yes (Hospitalization)
  Sender: FDA-Public Use
  Company Number: US-CELGENEUS-USA-20190309509

PATIENT
  Age: 75 Year
  Sex: Male
  Weight: 56.3 kg

DRUGS (1)
  1. REVLIMID [Suspect]
     Active Substance: LENALIDOMIDE
     Indication: MYELODYSPLASTIC SYNDROME
     Dosage: 10 MILLIGRAM
     Route: 048
     Dates: start: 20150623, end: 20160322

REACTIONS (1)
  - Corona virus infection [Recovered/Resolved]

NARRATIVE: CASE EVENT DATE: 20151210
